FAERS Safety Report 4565227-7 (Version None)
Quarter: 2005Q1

REPORT INFORMATION
  Report Type: 
  Country: None (occurrence: None)
  Receive Date: 20050127
  Receipt Date: 20050127
  Transmission Date: 20050727
  Serious: Yes (Hospitalization)
  Sender: FDA-Public Use
  Company Number: None

PATIENT
  Age: 70 Year
  Sex: Male
  Weight: 72.8 kg

DRUGS (2)
  1. PHENYTOIN [Suspect]
     Dosage: 500 MG, 100 MG QD ORAL
     Route: 048
  2. DONEPEZIL HCL [Concomitant]

REACTIONS (1)
  - DRUG LEVEL ABOVE THERAPEUTIC [None]
